FAERS Safety Report 10160673 (Version 1)
Quarter: 2014Q2

REPORT INFORMATION
  Report Type: Spontaneous
  Country: DE (occurrence: DE)
  Receive Date: 20140508
  Receipt Date: 20140508
  Transmission Date: 20141212
  Serious: Yes (Other)
  Sender: FDA-Public Use
  Company Number: DE-TEVA-479661GER

PATIENT
  Age: 1 Day
  Sex: Female

DRUGS (3)
  1. BISOPROLOL [Suspect]
     Route: 064
  2. L-THYROXIN [Concomitant]
     Route: 064
  3. FOLIO [Concomitant]
     Route: 064

REACTIONS (2)
  - Small for dates baby [Unknown]
  - Foetal exposure during pregnancy [Unknown]
